FAERS Safety Report 7243946-1 (Version None)
Quarter: 2011Q1

REPORT INFORMATION
  Report Type: 
  Country: None (occurrence: None)
  Receive Date: 20110125
  Receipt Date: 20110120
  Transmission Date: 20110831
  Serious: Yes (Other)
  Sender: FDA-Public Use
  Company Number: D0069766A

PATIENT
  Age: 77 Year
  Sex: Female
  Weight: 72 kg

DRUGS (2)
  1. AZILECT [Concomitant]
     Dosage: 1MG PER DAY
     Route: 048
  2. REQUIP [Suspect]
     Indication: PARKINSON'S DISEASE
     Dosage: 4MG TWICE PER DAY
     Route: 048
     Dates: start: 20100101

REACTIONS (2)
  - MALAISE [None]
  - HALLUCINATION [None]
